FAERS Safety Report 10950675 (Version 1)
Quarter: 2015Q1

REPORT INFORMATION
  Report Type: Spontaneous
  Country: US (occurrence: US)
  Receive Date: 20150324
  Receipt Date: 20150324
  Transmission Date: 20150721
  Serious: No
  Sender: FDA-Public Use
  Company Number: US-MALLINCKRODT-T201402362

PATIENT
  Age: 73 Year
  Sex: Male

DRUGS (3)
  1. SINOMET [Concomitant]
     Dosage: UNK, PRN
  2. LEVODOPA [Concomitant]
     Active Substance: LEVODOPA
     Dosage: UNK, PRN
  3. METHADONE [Suspect]
     Active Substance: METHADONE HYDROCHLORIDE
     Indication: RESTLESS LEGS SYNDROME
     Dosage: 5 MG, THREE TABS BID
     Route: 048
     Dates: start: 20140418

REACTIONS (2)
  - Product use issue [Not Recovered/Not Resolved]
  - Drug ineffective for unapproved indication [Not Recovered/Not Resolved]

NARRATIVE: CASE EVENT DATE: 201404
